FAERS Safety Report 7081671-0 (Version None)
Quarter: 2010Q4

REPORT INFORMATION
  Report Type: 
  Country: None (occurrence: None)
  Receive Date: 20101103
  Receipt Date: 20101025
  Transmission Date: 20110411
  Serious: Yes (Other)
  Sender: FDA-Public Use
  Company Number: US-ASTRAZENECA-2010SE50699

PATIENT
  Age: 53 Year
  Sex: Male
  Weight: 56.7 kg

DRUGS (3)
  1. NEXIUM [Suspect]
     Dosage: STARTED FOR 3-4 YEARS.
     Route: 048
  2. LORAZEPAM [Concomitant]
  3. VICODIN [Concomitant]

REACTIONS (1)
  - THROAT CANCER [None]
